FAERS Safety Report 26122652 (Version 1)
Quarter: 2025Q4

REPORT INFORMATION
  Report Type: Spontaneous
  Country: US (occurrence: US)
  Receive Date: 20251204
  Receipt Date: 20251204
  Transmission Date: 20260119
  Serious: No
  Sender: ALEXION PHARMACEUTICALS
  Company Number: US-AstraZeneca-CH-01005696AP

PATIENT
  Sex: Female

DRUGS (2)
  1. FASENRA [Suspect]
     Active Substance: BENRALIZUMAB
     Route: 065
  2. FASENRA [Suspect]
     Active Substance: BENRALIZUMAB

REACTIONS (9)
  - Eosinophil count decreased [Unknown]
  - Blood pressure decreased [Unknown]
  - Blood creatinine abnormal [Unknown]
  - Weight decreased [Unknown]
  - Glomerular filtration rate decreased [Unknown]
  - Product dose omission issue [Unknown]
  - Product lot number issue [Unknown]
  - Blood test [Unknown]
  - Needle issue [Unknown]
